FAERS Safety Report 21760213 (Version 1)
Quarter: 2022Q4

REPORT INFORMATION
  Report Type: Spontaneous
  Country: US (occurrence: US)
  Receive Date: 20221221
  Receipt Date: 20221221
  Transmission Date: 20230113
  Serious: No
  Sender: FDA-Public Use
  Company Number: US-TEVA-2022-US-2836208

PATIENT
  Age: 80 Year
  Sex: Female
  Weight: 68.04 kg

DRUGS (2)
  1. TORSEMIDE [Suspect]
     Active Substance: TORSEMIDE
     Indication: Peripheral swelling
     Dosage: 20 MILLIGRAM DAILY;
     Route: 048
     Dates: start: 2022
  2. CALCIUM [Concomitant]
     Active Substance: CALCIUM
     Indication: Product used for unknown indication

REACTIONS (2)
  - Incontinence [Unknown]
  - Feeling abnormal [Unknown]

NARRATIVE: CASE EVENT DATE: 20220101
